FAERS Safety Report 20414404 (Version 1)
Quarter: 2022Q1

REPORT INFORMATION
  Report Type: Spontaneous
  Country: DE (occurrence: DE)
  Receive Date: 20220202
  Receipt Date: 20220202
  Transmission Date: 20220423
  Serious: Yes (Other)
  Sender: FDA-Public Use
  Company Number: DE-ROCHE-2928536

PATIENT
  Age: 82 Year
  Sex: Female
  Weight: 71.9 kg

DRUGS (4)
  1. TRASTUZUMAB [Suspect]
     Active Substance: TRASTUZUMAB
     Indication: Breast cancer
     Dosage: 408 MILLIGRAM (DATE OF LAST APPLICATION PRIOR EVENT: 26/MAR/2021)
     Route: 065
     Dates: start: 20210108
  2. TRASTUZUMAB [Suspect]
     Active Substance: TRASTUZUMAB
     Dosage: 441 MILLIGRAM
     Route: 065
     Dates: start: 20210129
  3. PACLITAXEL [Suspect]
     Active Substance: PACLITAXEL
     Indication: Breast cancer
     Dosage: 138 MILLIGRAM (DATE OF LAST APPLICATION PRIOR EVENT: 26/MAR/2021)
     Route: 065
     Dates: start: 20210108
  4. PERTUZUMAB [Suspect]
     Active Substance: PERTUZUMAB
     Indication: Breast cancer
     Dosage: 420 MILLIGRAM (DATE OF LAST APPLICATION PRIOR EVENT: 26/MAR/2021, 30/APR/2021)
     Route: 065
     Dates: start: 20210108

REACTIONS (5)
  - Polyneuropathy [Recovering/Resolving]
  - Eye inflammation [Unknown]
  - Dysgeusia [Not Recovered/Not Resolved]
  - Oedema peripheral [Recovering/Resolving]
  - Off label use [Unknown]

NARRATIVE: CASE EVENT DATE: 20210108
